FAERS Safety Report 14720485 (Version 1)
Quarter: 2018Q2

REPORT INFORMATION
  Report Type: Spontaneous
  Country: US (occurrence: US)
  Receive Date: 20180405
  Receipt Date: 20180405
  Transmission Date: 20180711
  Serious: No
  Sender: FDA-Public Use
  Company Number: US-ELI_LILLY_AND_COMPANY-US201803005033

PATIENT
  Sex: Male

DRUGS (2)
  1. HUMALOG [Suspect]
     Active Substance: INSULIN LISPRO
     Indication: DIABETES MELLITUS
     Dosage: 16-17 U, DAILY (BEFORE EACH MEAL)
     Route: 058
     Dates: start: 201709
  2. HUMALOG [Suspect]
     Active Substance: INSULIN LISPRO
     Dosage: 16-17 U, DAILY (BEFORE EACH MEAL)
     Route: 058
     Dates: start: 201709

REACTIONS (5)
  - Blood glucose increased [Recovered/Resolved]
  - Blood glucose decreased [Recovered/Resolved]
  - Blood glucose decreased [Recovering/Resolving]
  - Incorrect dose administered [Unknown]
  - Blood glucose abnormal [Recovering/Resolving]
